FAERS Safety Report 9859531 (Version 1)
Quarter: 2014Q1

REPORT INFORMATION
  Report Type: Spontaneous
  Country: MX (occurrence: MX)
  Receive Date: 20140131
  Receipt Date: 20140131
  Transmission Date: 20141002
  Serious: Yes (Death)
  Sender: FDA-Public Use
  Company Number: MX-PFIZER INC-2014029433

PATIENT
  Age: 63 Year
  Sex: Female

DRUGS (1)
  1. CELECOXIB [Suspect]
     Dosage: UNK
     Route: 048
     Dates: end: 2013

REACTIONS (1)
  - Death [Fatal]
